FAERS Safety Report 21035176 (Version 2)
Quarter: 2022Q3

REPORT INFORMATION
  Report Type: Spontaneous
  Country: US (occurrence: US)
  Receive Date: 20220701
  Receipt Date: 20220812
  Transmission Date: 20221027
  Serious: Yes (Hospitalization, Other)
  Sender: FDA-Public Use
  Company Number: US-ALLERGAN-2220907US

PATIENT
  Sex: Male
  Weight: 71.655 kg

DRUGS (8)
  1. THYROID, UNSPECIFIED [Suspect]
     Active Substance: THYROID, UNSPECIFIED
     Indication: Hypothyroidism
     Dosage: 30 MG, QD
     Dates: start: 201402
  2. SYNTHROID [Suspect]
     Active Substance: LEVOTHYROXINE SODIUM
     Indication: Hypothyroidism
     Dosage: 50 MG, QD
  3. LEVOTHYROXINE [Suspect]
     Active Substance: LEVOTHYROXINE
     Indication: Hypothyroidism
     Dosage: 50 MG, QD
     Dates: start: 201402, end: 201404
  4. COVID-19 VACCINE NOS [Concomitant]
     Active Substance: COVID-19 VACCINE NOS
     Indication: COVID-19 immunisation
     Dosage: UNK
     Dates: start: 20211021, end: 20211021
  5. COVID-19 VACCINE NOS [Concomitant]
     Active Substance: COVID-19 VACCINE NOS
     Dosage: UNK
     Dates: start: 20210406, end: 20210406
  6. COVID-19 VACCINE NOS [Concomitant]
     Active Substance: COVID-19 VACCINE NOS
     Dosage: UNK
     Dates: start: 20210309, end: 20210309
  7. AMLODIPINE [Concomitant]
     Active Substance: AMLODIPINE BESYLATE
     Indication: Hypertension
  8. PRAVASTATIN [Concomitant]
     Active Substance: PRAVASTATIN
     Indication: Blood cholesterol increased

REACTIONS (4)
  - Hypertension [Recovering/Resolving]
  - Eye haemorrhage [Recovered/Resolved]
  - Cataract [Recovered/Resolved]
  - Colour blindness [Not Recovered/Not Resolved]

NARRATIVE: CASE EVENT DATE: 20140101
